FAERS Safety Report 12401241 (Version 1)
Quarter: 2016Q2

REPORT INFORMATION
  Report Type: Spontaneous
  Country: BR (occurrence: BR)
  Receive Date: 20160525
  Receipt Date: 20160525
  Transmission Date: 20160815
  Serious: Yes (Hospitalization, Other)
  Sender: FDA-Public Use
  Company Number: BR-GLAXOSMITHKLINE-BR2016GSK072797

PATIENT
  Sex: Female

DRUGS (1)
  1. FLIXOTIDE (CFC-FREE) [Suspect]
     Active Substance: FLUTICASONE PROPIONATE
     Indication: ASTHMATIC CRISIS
     Dosage: 250 UG, UNK

REACTIONS (2)
  - Asthmatic crisis [Recovered/Resolved]
  - Drug effect incomplete [Recovered/Resolved]
